FAERS Safety Report 6767817-X (Version None)
Quarter: 2010Q2

REPORT INFORMATION
  Report Type: 
  Country: None (occurrence: None)
  Receive Date: 20100614
  Receipt Date: 20100609
  Transmission Date: 20101027
  Serious: Yes (Death)
  Sender: FDA-Public Use
  Company Number: PHHY2010CN37518

PATIENT
  Sex: Female

DRUGS (3)
  1. SEBIVO [Suspect]
     Indication: HEPATIC CIRRHOSIS
     Dosage: UNK
     Route: 048
     Dates: start: 20080814
  2. SILYBUM MARIANUM [Concomitant]
     Dosage: UNK
     Dates: start: 20080814
  3. BIEJIA RUANGAN [Concomitant]
     Dosage: UNK
     Dates: start: 20080814

REACTIONS (1)
  - HEPATIC NEOPLASM [None]
